FAERS Safety Report 12550866 (Version 1)
Quarter: 2016Q3

REPORT INFORMATION
  Report Type: Spontaneous
  Country: SK (occurrence: SK)
  Receive Date: 20160712
  Receipt Date: 20160712
  Transmission Date: 20161109
  Serious: Yes (Death, Life-Threatening, Hospitalization)
  Sender: FDA-Public Use
  Company Number: SK-TEVA-673780ISR

PATIENT
  Age: 55 Year
  Sex: Male
  Weight: 92 kg

DRUGS (14)
  1. ENALAPRIL [Suspect]
     Active Substance: ENALAPRIL
     Indication: CARDIAC FAILURE
     Dosage: CODE NOT BROKEN -ALISKIREN VS ENALAPRIL VS ALISKIREN+ENALAPRIL
     Route: 048
     Dates: end: 20140326
  2. KALDYUM [Concomitant]
     Active Substance: POTASSIUM CHLORIDE
  3. WARFARIN [Concomitant]
     Active Substance: WARFARIN
  4. RIVODARON [Concomitant]
     Dates: start: 20120123
  5. INSPRA [Concomitant]
     Active Substance: EPLERENONE
     Dates: start: 20130123
  6. FUROSEMID [Suspect]
     Active Substance: FUROSEMIDE
     Indication: CARDIAC FAILURE
     Route: 042
     Dates: start: 20140326
  7. FURON [Suspect]
     Active Substance: FUROSEMIDE
     Indication: CARDIAC FAILURE
     Dosage: 80 MILLIGRAM DAILY;
     Route: 048
     Dates: start: 20100713
  8. BETALOC ZOK [Concomitant]
     Active Substance: METOPROLOL SUCCINATE
     Dates: start: 20120123
  9. KALIUM CHLORATUM [Concomitant]
     Active Substance: POTASSIUM CHLORIDE
     Dates: start: 20100326
  10. HYDROCHLOROTHIAZID [Concomitant]
     Active Substance: HYDROCHLOROTHIAZIDE
     Dates: start: 20120123
  11. METOPROLOL. [Concomitant]
     Active Substance: METOPROLOL
     Dates: start: 20110519
  12. ALISKIREN [Suspect]
     Active Substance: ALISKIREN
     Indication: CARDIAC FAILURE
     Dosage: CODE NOT BROKEN -ALISKIREN VS ENALAPRIL VS ALISKIREN+ENALAPRIL
     Route: 048
     Dates: start: 20100913
  13. NEBILET [Concomitant]
     Active Substance: NEBIVOLOL
     Dates: end: 20110519
  14. DIGOXIN. [Concomitant]
     Active Substance: DIGOXIN
     Dates: start: 20080808

REACTIONS (6)
  - Respiratory arrest [Fatal]
  - Ventricular tachycardia [Recovered/Resolved with Sequelae]
  - Hypokalaemia [Unknown]
  - Ventricular fibrillation [Recovered/Resolved]
  - Cardiac failure chronic [Fatal]
  - Atrial fibrillation [Fatal]

NARRATIVE: CASE EVENT DATE: 20140326
